FAERS Safety Report 7843262-0 (Version None)
Quarter: 2011Q4

REPORT INFORMATION
  Report Type: 
  Country: None (occurrence: None)
  Receive Date: 20111025
  Receipt Date: 20111019
  Transmission Date: 20120403
  Serious: Yes (Hospitalization)
  Sender: FDA-Public Use
  Company Number: DE-AMGEN-DEUSP2011051856

PATIENT
  Age: 66 Year
  Sex: Female
  Weight: 73 kg

DRUGS (10)
  1. ZOFRAN [Concomitant]
     Indication: PROPHYLAXIS OF NAUSEA AND VOMITING
     Dosage: 8 MG, UNK
     Route: 042
     Dates: start: 20110915, end: 20110915
  2. NEULASTA [Suspect]
     Indication: PROPHYLAXIS
     Dosage: 6 MG, UNK
     Route: 058
     Dates: start: 20110916, end: 20110916
  3. CYCLOPHOSPHAMIDE [Suspect]
     Indication: BREAST CANCER
     Dosage: 1040 UNK, UNK
     Route: 042
     Dates: start: 20110915, end: 20110915
  4. EMEND                              /01627301/ [Concomitant]
     Indication: PROPHYLAXIS OF NAUSEA AND VOMITING
     Dosage: 125 MG, UNK
     Route: 048
     Dates: start: 20110915, end: 20110917
  5. UROMITEXAN [Concomitant]
     Indication: PROPHYLAXIS
     Dosage: 1000 MG, UNK
     Route: 042
     Dates: start: 20110915, end: 20110915
  6. DEXAMETHASONE [Suspect]
     Indication: PROPHYLAXIS OF NAUSEA AND VOMITING
     Dosage: 8 UNK, UNK
     Route: 042
     Dates: start: 20110915, end: 20110917
  7. DEXAMETHASONE [Suspect]
     Dosage: 8-12 MG, UNK
     Route: 048
     Dates: start: 20110915, end: 20110917
  8. EPIRUBICIN [Suspect]
     Indication: BREAST CANCER
     Dosage: 156 UNK, UNK
     Route: 042
     Dates: start: 20110915, end: 20110915
  9. MCP                                /00041901/ [Concomitant]
     Indication: PROPHYLAXIS OF NAUSEA AND VOMITING
     Dosage: 60 MG, UNK
     Route: 048
     Dates: start: 20110916, end: 20110917
  10. EMEND                              /01627301/ [Concomitant]
     Dosage: 80 MG, UNK
     Route: 048
     Dates: start: 20110915, end: 20110917

REACTIONS (1)
  - DEEP VEIN THROMBOSIS [None]
